FAERS Safety Report 7610007-9 (Version None)
Quarter: 2011Q3

REPORT INFORMATION
  Report Type: 
  Country: None (occurrence: None)
  Receive Date: 20110714
  Receipt Date: 20110705
  Transmission Date: 20111222
  Serious: Yes (Hospitalization)
  Sender: FDA-Public Use
  Company Number: US-ASTRAZENECA-2011SE40082

PATIENT
  Age: 42 Year
  Sex: Female
  Weight: 67.1 kg

DRUGS (5)
  1. SEROQUEL XR [Suspect]
     Indication: BIPOLAR I DISORDER
     Route: 048
     Dates: start: 20020101
  2. LISINOPRIL [Concomitant]
  3. NORVASC [Concomitant]
  4. HYDROCHLOROTHIAZIDE [Concomitant]
  5. NEXIUM [Concomitant]

REACTIONS (6)
  - MUSCLE SPASMS [None]
  - IRRITABILITY [None]
  - DRUG DOSE OMISSION [None]
  - INSOMNIA [None]
  - ROAD TRAFFIC ACCIDENT [None]
  - DEPRESSION [None]
